FAERS Safety Report 4390931-3 (Version None)
Quarter: 2004Q3

REPORT INFORMATION
  Report Type: 
  Country: None (occurrence: None)
  Receive Date: 20040707
  Receipt Date: 20040429
  Transmission Date: 20050211
  Serious: Yes (Hospitalization)
  Sender: FDA-Public Use
  Company Number: US-BRISTOL-MYERS SQUIBB COMPANY-12580213

PATIENT
  Age: 59 Year
  Sex: Female

DRUGS (4)
  1. TEQUIN [Suspect]
     Indication: CHRONIC SINUSITIS
     Route: 048
     Dates: start: 20040406, end: 20040406
  2. CLARINEX [Concomitant]
  3. RHINOCORT [Concomitant]
  4. NASACORT [Concomitant]

REACTIONS (1)
  - ARRHYTHMIA [None]
